FAERS Safety Report 6251298-9 (Version None)
Quarter: 2009Q2

REPORT INFORMATION
  Report Type: 
  Country: None (occurrence: None)
  Receive Date: 20090630
  Receipt Date: 20090625
  Transmission Date: 20091009
  Serious: Yes (Death, Other)
  Sender: FDA-Public Use
  Company Number: PHEH2009US06629

PATIENT
  Sex: Male

DRUGS (1)
  1. EXJADE [Suspect]
     Dosage: 1500 MG, QD
     Route: 048

REACTIONS (9)
  - COUGH [None]
  - FATIGUE [None]
  - HAEMATOCRIT DECREASED [None]
  - HAEMOGLOBIN DECREASED [None]
  - HAEMORRHAGE INTRACRANIAL [None]
  - PLATELET COUNT DECREASED [None]
  - PNEUMONIA FUNGAL [None]
  - PYREXIA [None]
  - WHITE BLOOD CELL COUNT INCREASED [None]
